FAERS Safety Report 5866086-2 (Version None)
Quarter: 2008Q3

REPORT INFORMATION
  Report Type: 
  Country: None (occurrence: None)
  Receive Date: 20080829
  Receipt Date: 20080818
  Transmission Date: 20090109
  Serious: Yes (Other)
  Sender: FDA-Public Use
  Company Number: NL-AMGEN-US219121

PATIENT
  Age: 34 Year
  Sex: Male

DRUGS (3)
  1. ENBREL [Suspect]
     Indication: ANKYLOSING SPONDYLITIS
     Route: 058
     Dates: start: 20060407, end: 20060921
  2. ENBREL [Suspect]
     Route: 058
     Dates: start: 20070201, end: 20070319
  3. NAPROXEN [Concomitant]
     Dosage: UNK
     Route: 065

REACTIONS (2)
  - ALANINE AMINOTRANSFERASE INCREASED [None]
  - ASPARTATE AMINOTRANSFERASE [None]
